FAERS Safety Report 10642729 (Version 6)
Quarter: 2019Q4

REPORT INFORMATION
  Report Type: Spontaneous
  Country: US (occurrence: US)
  Receive Date: 20141210
  Receipt Date: 20191125
  Transmission Date: 20200122
  Serious: Yes (Disabling, Other)
  Sender: FDA-Public Use
  Company Number: US-009507513-1205USA05025

PATIENT
  Sex: Male
  Weight: 96.6 kg

DRUGS (2)
  1. PROPECIA [Suspect]
     Active Substance: FINASTERIDE
     Dosage: 1 MG, QD
     Route: 048
     Dates: start: 20030512, end: 20120207
  2. PROPECIA [Suspect]
     Active Substance: FINASTERIDE
     Indication: ANDROGENETIC ALOPECIA
     Dosage: UNK
     Route: 048
     Dates: start: 1990

REACTIONS (24)
  - Depression [Not Recovered/Not Resolved]
  - Peyronie^s disease [Recovering/Resolving]
  - Dysarthria [Unknown]
  - Constipation [Unknown]
  - Urinary tract disorder [Unknown]
  - Penis disorder [Recovered/Resolved]
  - Ejaculation failure [Not Recovered/Not Resolved]
  - Paraesthesia [Unknown]
  - Peripheral coldness [Unknown]
  - Dizziness [Unknown]
  - Libido decreased [Not Recovered/Not Resolved]
  - Penile haematoma [Recovering/Resolving]
  - Benign prostatic hyperplasia [Unknown]
  - Sexual dysfunction [Not Recovered/Not Resolved]
  - Spontaneous penile erection [Unknown]
  - Genital atrophy [Unknown]
  - Anxiety [Not Recovered/Not Resolved]
  - Cognitive disorder [Not Recovered/Not Resolved]
  - Neuropathy peripheral [Unknown]
  - Neuropathy peripheral [Unknown]
  - Erectile dysfunction [Not Recovered/Not Resolved]
  - Intervertebral disc protrusion [Unknown]
  - Dysuria [Unknown]
  - Penis injury [Unknown]

NARRATIVE: CASE EVENT DATE: 2007
